FAERS Safety Report 17541252 (Version 1)
Quarter: 2020Q1

REPORT INFORMATION
  Report Type: Report from Study
  Country: GR (occurrence: GR)
  Receive Date: 20200313
  Receipt Date: 20200313
  Transmission Date: 20200409
  Serious: Yes (Hospitalization)
  Sender: FDA-Public Use
  Company Number: GR-PFIZER INC-2020107420

PATIENT
  Age: 71 Year
  Sex: Female
  Weight: 98 kg

DRUGS (12)
  1. ZOMETA [Concomitant]
     Active Substance: ZOLEDRONIC ACID
     Dosage: UNK
     Dates: start: 20161018
  2. CALCIORAL D3 [Concomitant]
     Dosage: ONGOING = CHECKED
     Dates: start: 20171218
  3. TRASTUZUMAB EMTANSINE [Suspect]
     Active Substance: ADO-TRASTUZUMAB EMTANSINE
     Indication: BREAST CANCER
     Dosage: 270 MG, EVERY 3 WEEKS
     Route: 042
     Dates: start: 20170726, end: 20180504
  4. LAPATINIB [Suspect]
     Active Substance: LAPATINIB
     Indication: BREAST CANCER
     Dosage: 1250 MG, 1X/DAY MOST RECENT DOSE PRIOR TO THE EVENT: 14NOV2018
     Route: 048
     Dates: start: 20180618
  5. DOCETAXEL. [Suspect]
     Active Substance: DOCETAXEL
     Indication: BREAST CANCER
     Dosage: 160 MG, EVERY 3 WEEKS MOST RECENT DOSE PRIOR TO THE EVENT: 17NOV2016
     Route: 042
     Dates: start: 20161025
  6. TRASTUZUMAB. [Suspect]
     Active Substance: TRASTUZUMAB
     Indication: BREAST CANCER
     Dosage: 780 MG, EVERY 3 WEEKS MOST RECENT DOSE PRIOR TO THE EVENT: 10MAY2019
     Route: 042
     Dates: start: 20161025
  7. T4 [Concomitant]
     Active Substance: LEVOTHYROXINE
     Dosage: ONGOING = CHECKED
     Dates: start: 20090615
  8. GEMCITABINE. [Suspect]
     Active Substance: GEMCITABINE
     Indication: BREAST CANCER
     Dosage: 2000 MG, UNK MOST RECENT DOSE PRIOR TO THE EVENT: 28AUG2019
     Route: 042
     Dates: start: 20190510
  9. PERTUZUMAB. [Suspect]
     Active Substance: PERTUZUMAB
     Indication: BREAST CANCER
     Dosage: 840 MG, EVERY 3 WEEKS
     Route: 042
     Dates: start: 20161117
  10. CAPECITABINE. [Suspect]
     Active Substance: CAPECITABINE
     Indication: BREAST CANCER
     Dosage: 2000 MG 1/X 0.5 DAY UNK MOST RECENT DOSE PRIOR TO THE EVENT: 22OCT2018
     Route: 048
     Dates: start: 20180618
  11. T4 [Concomitant]
     Active Substance: LEVOTHYROXINE
     Dosage: ONGOING = CHECKED
     Dates: start: 20090615
  12. LONALGAL [Concomitant]
     Active Substance: ACETAMINOPHEN\CODEINE PHOSPHATE
     Dosage: ONGOING = CHECKED

REACTIONS (1)
  - Cerebrovascular accident [Recovered/Resolved]

NARRATIVE: CASE EVENT DATE: 20190915
